FAERS Safety Report 17197697 (Version 1)
Quarter: 2019Q4

REPORT INFORMATION
  Report Type: Spontaneous
  Country: US (occurrence: US)
  Receive Date: 20191224
  Receipt Date: 20191224
  Transmission Date: 20200122
  Serious: Yes (Death, Hospitalization)
  Sender: FDA-Public Use
  Company Number: US-TEVA-2019-US-1157517

PATIENT
  Age: 39 Year
  Sex: Male

DRUGS (2)
  1. HYDROCARBON [Suspect]
     Active Substance: HYDROCARBON
     Dosage: INHALATION/NASAL
     Route: 065
  2. BUPROPION. [Suspect]
     Active Substance: BUPROPION
     Dosage: INGESTED  46 BUPROPION TABLETS AND HUFFED A DUSTING AEROSOL PRIOR TO BEING TASERED
     Route: 065

REACTIONS (6)
  - Brain injury [Unknown]
  - Intentional overdose [Fatal]
  - Myoclonus [Unknown]
  - Cardiac arrest [Fatal]
  - Arrhythmia [Fatal]
  - Seizure [Unknown]
